FAERS Safety Report 9222327 (Version 1)
Quarter: 2013Q2

REPORT INFORMATION
  Report Type: Spontaneous
  Country: US (occurrence: US)
  Receive Date: 20130410
  Receipt Date: 20130410
  Transmission Date: 20140414
  Serious: Yes (Other)
  Sender: FDA-Public Use
  Company Number: US-PFIZER INC-2013112398

PATIENT
  Age: 50 Year
  Sex: Male
  Weight: 88.4 kg

DRUGS (2)
  1. LYRICA [Suspect]
     Indication: NEURALGIA
     Dosage: UNK, 3X/DAY
     Dates: start: 2008
  2. HYDROCODONE [Concomitant]
     Dosage: UNK

REACTIONS (2)
  - Gastrointestinal disorder [Unknown]
  - Confusional state [Unknown]
